FAERS Safety Report 17944571 (Version 2)
Quarter: 2020Q3

REPORT INFORMATION
  Report Type: Spontaneous
  Country: US (occurrence: US)
  Receive Date: 20200625
  Receipt Date: 20200703
  Transmission Date: 20201103
  Serious: Yes (Other)
  Sender: FDA-Public Use
  Company Number: US-PFIZER INC-2020244740

PATIENT

DRUGS (1)
  1. PHENELZINE SULFATE. [Suspect]
     Active Substance: PHENELZINE SULFATE
     Indication: ANTIDEPRESSANT THERAPY
     Dosage: UNK

REACTIONS (2)
  - Acute psychosis [Unknown]
  - Rebound psychosis [Unknown]
